FAERS Safety Report 20997773 (Version 1)
Quarter: 2022Q2

REPORT INFORMATION
  Report Type: Spontaneous
  Country: US (occurrence: None)
  Receive Date: 20220622
  Receipt Date: 20220622
  Transmission Date: 20220721
  Serious: Yes (Other)
  Sender: FDA-Public Use
  Company Number: None

PATIENT
  Age: 74 Year
  Sex: Female
  Weight: 51.75 kg

DRUGS (1)
  1. PAXLOVID [Suspect]
     Active Substance: NIRMATRELVIR\RITONAVIR
     Indication: COVID-19
     Dosage: OTHER QUANTITY : 2 CAPSULE(S);?FREQUENCY : EVERY 12 HOURS;?
     Route: 048

REACTIONS (3)
  - COVID-19 [None]
  - SARS-CoV-2 test positive [None]
  - Pyrexia [None]

NARRATIVE: CASE EVENT DATE: 20220619
